FAERS Safety Report 9370129 (Version 3)
Quarter: 2013Q3

REPORT INFORMATION
  Report Type: Spontaneous
  Country: BR (occurrence: BR)
  Receive Date: 20130626
  Receipt Date: 20130725
  Transmission Date: 20140515
  Serious: Yes (Hospitalization)
  Sender: FDA-Public Use
  Company Number: PHHY2013BR064411

PATIENT
  Age: 64 Year
  Sex: Male
  Weight: 72 kg

DRUGS (5)
  1. LECTRUM [Suspect]
     Indication: PROSTATE CANCER
     Dates: start: 20090504, end: 20120329
  2. GEPEPROSTIN [Suspect]
     Indication: PROSTATE CANCER
     Dates: start: 20070617, end: 200905
  3. ATACAND [Concomitant]
     Indication: BLOOD PRESSURE ABNORMAL
  4. PRESSAT [Concomitant]
     Indication: BLOOD PRESSURE ABNORMAL
  5. CRESTOR [Concomitant]
     Indication: BLOOD CHOLESTEROL ABNORMAL

REACTIONS (8)
  - Pancreatitis [Not Recovered/Not Resolved]
  - Abdominal pain upper [Not Recovered/Not Resolved]
  - Breast enlargement [Not Recovered/Not Resolved]
  - Myalgia [Not Recovered/Not Resolved]
  - Arthralgia [Not Recovered/Not Resolved]
  - Headache [Not Recovered/Not Resolved]
  - Neck pain [Not Recovered/Not Resolved]
  - Asthenia [Not Recovered/Not Resolved]
